FAERS Safety Report 9304054 (Version 2)
Quarter: 2013Q3

REPORT INFORMATION
  Report Type: Spontaneous
  Country: US (occurrence: None)
  Receive Date: 20130125
  Receipt Date: 20130815
  Transmission Date: 20140515
  Serious: Yes (Hospitalization, Other)
  Sender: FDA-Public Use
  Company Number: ADR-2012-01359

PATIENT
  Age: 64 Year
  Sex: Female

DRUGS (2)
  1. LIORESAL [Suspect]
     Indication: MUSCLE SPASTICITY
  2. LIORESAL [Suspect]
     Indication: MULTIPLE SCLEROSIS

REACTIONS (11)
  - Fatigue [None]
  - Staphylococcal infection [None]
  - Device related infection [None]
  - Deep vein thrombosis [None]
  - Pleural effusion [None]
  - Wound infection [None]
  - Pyrexia [None]
  - Implant site infection [None]
  - Implant site oedema [None]
  - Implant site inflammation [None]
  - Purulence [None]
